FAERS Safety Report 18560352 (Version 1)
Quarter: 2020Q4

REPORT INFORMATION
  Report Type: Spontaneous
  Country: GB (occurrence: GB)
  Receive Date: 20201130
  Receipt Date: 20201130
  Transmission Date: 20210114
  Serious: Yes (Other)
  Sender: FDA-Public Use
  Company Number: GB-FOUNDATIONCONSUMERHC-2020-UK-000279

PATIENT
  Age: 22 Year
  Sex: Female

DRUGS (3)
  1. IMODIUM [Concomitant]
     Active Substance: LOPERAMIDE HYDROCHLORIDE
  2. LEVONORGESTREL (UNSPECIFIED) [Suspect]
     Active Substance: LEVONORGESTREL
     Indication: POST COITAL CONTRACEPTION
     Route: 048
     Dates: start: 20181119, end: 20181119
  3. PARACETAMOL [Concomitant]
     Active Substance: ACETAMINOPHEN

REACTIONS (5)
  - Speech disorder [Unknown]
  - Dyspnoea [Unknown]
  - Swelling face [Unknown]
  - Hypersensitivity [Unknown]
  - Facial pain [Unknown]

NARRATIVE: CASE EVENT DATE: 20181119
